FAERS Safety Report 16041464 (Version 1)
Quarter: 2019Q1

REPORT INFORMATION
  Report Type: Spontaneous
  Country: US (occurrence: US)
  Receive Date: 20190306
  Receipt Date: 20190306
  Transmission Date: 20190418
  Serious: No
  Sender: FDA-Public Use
  Company Number: US-AKORN PHARMACEUTICALS-2018AKN01416

PATIENT
  Age: 13 Year
  Sex: Female

DRUGS (2)
  1. UNSPECIFIED BIRTH CONTROL [Concomitant]
     Active Substance: UNSPECIFIED INGREDIENT
  2. MYORISAN [Suspect]
     Active Substance: ISOTRETINOIN
     Indication: ACNE
     Dosage: 40 MG, 2X/DAY
     Route: 048
     Dates: start: 20180424, end: 2018

REACTIONS (13)
  - Blood triglycerides increased [Recovering/Resolving]
  - Total cholesterol/HDL ratio increased [Unknown]
  - Musculoskeletal stiffness [Unknown]
  - Scar [Unknown]
  - Lip dry [Not Recovered/Not Resolved]
  - Dry skin [Unknown]
  - Rash [Unknown]
  - Seborrhoeic keratosis [Unknown]
  - Papule [Unknown]
  - Non-high-density lipoprotein cholesterol increased [Unknown]
  - Arthralgia [Unknown]
  - High density lipoprotein decreased [Unknown]
  - Chapped lips [Not Recovered/Not Resolved]

NARRATIVE: CASE EVENT DATE: 20180523
